FAERS Safety Report 20317850 (Version 4)
Quarter: 2022Q1

REPORT INFORMATION
  Report Type: Report from Study
  Country: IT (occurrence: IT)
  Receive Date: 20220110
  Receipt Date: 20220224
  Transmission Date: 20220423
  Serious: Yes (Hospitalization)
  Sender: FDA-Public Use
  Company Number: None

PATIENT
  Age: 49 Year
  Sex: Female

DRUGS (2)
  1. HALOPERIDOL [Suspect]
     Active Substance: HALOPERIDOL
     Indication: Psychotic disorder
     Dosage: ; IN TOTAL?10 MG/ML ORAL DROPS, SOLUTION
     Route: 048
     Dates: start: 20211222, end: 20211222
  2. LORAZEPAM [Suspect]
     Active Substance: LORAZEPAM
     Indication: Anxiety
     Dosage: ; IN TOTAL?LORANS 2,5 MG TABLETS
     Route: 048
     Dates: start: 20211222, end: 20211222

REACTIONS (5)
  - Coma [Recovering/Resolving]
  - Suicide attempt [Recovering/Resolving]
  - Drug abuse [Recovering/Resolving]
  - Off label use [Unknown]
  - Incorrect dose administered [Unknown]

NARRATIVE: CASE EVENT DATE: 20211222
